FAERS Safety Report 8338200-0 (Version None)
Quarter: 2012Q2

REPORT INFORMATION
  Report Type: 
  Country: None (occurrence: None)
  Receive Date: 20120504
  Receipt Date: 20120502
  Transmission Date: 20120825
  Serious: No
  Sender: FDA-Public Use
  Company Number: US-PFIZER INC-2012108179

PATIENT
  Sex: Female
  Weight: 47.166 kg

DRUGS (6)
  1. LOPID [Concomitant]
     Indication: CARDIAC DISORDER
     Dosage: UNK
  2. CHANTIX [Suspect]
     Indication: SMOKING CESSATION THERAPY
     Dosage: 0.5 MG, 1X/DAY
     Route: 048
     Dates: start: 20120309
  3. ZANTAC [Concomitant]
     Indication: FLATULENCE
     Dosage: UNK
  4. LOVASTATIN [Concomitant]
     Indication: CARDIAC DISORDER
     Dosage: UNK
  5. CHANTIX [Suspect]
     Dosage: 0.5 MG, 2X/DAY
     Route: 048
     Dates: start: 20120101
  6. CHANTIX [Suspect]
     Dosage: 1 MG, 2X/DAY
     Route: 048
     Dates: start: 20120101, end: 20120420

REACTIONS (2)
  - CONSTIPATION [None]
  - INSOMNIA [None]
